FAERS Safety Report 4934168-5 (Version None)
Quarter: 2006Q1

REPORT INFORMATION
  Report Type: 
  Country: None (occurrence: None)
  Receive Date: 20060301
  Receipt Date: 20060214
  Transmission Date: 20060701
  Serious: Yes (Other)
  Sender: FDA-Public Use
  Company Number: 2006-138613-NL

PATIENT
  Age: 27 Year
  Sex: Female
  Weight: 81.6 kg

DRUGS (1)
  1. NUVARING [Suspect]
     Indication: CONTRACEPTION
     Dosage: VAGINAL, 3 WEEKS IN, 1 WEEK OUT
     Route: 067
     Dates: start: 20020701, end: 20020901

REACTIONS (5)
  - CEREBROVASCULAR ACCIDENT [None]
  - DIPLOPIA [None]
  - MYASTHENIA GRAVIS [None]
  - OCULAR MYASTHENIA [None]
  - VISION BLURRED [None]
